FAERS Safety Report 7261317-9 (Version None)
Quarter: 2011Q1

REPORT INFORMATION
  Report Type: 
  Country: None (occurrence: None)
  Receive Date: 20110130
  Receipt Date: 20101006
  Transmission Date: 20110831
  Serious: No
  Sender: FDA-Public Use
  Company Number: US-ABBOTT-10P-163-0677155-00

PATIENT
  Sex: Female
  Weight: 41.314 kg

DRUGS (4)
  1. HUMIRA [Suspect]
     Indication: PSORIASIS
     Dates: start: 20060101, end: 20100701
  2. EXCEDRIN (MIGRAINE) [Concomitant]
     Indication: MIGRAINE
  3. HUMIRA [Suspect]
     Indication: RHEUMATOID ARTHRITIS
  4. ADVIL [Concomitant]
     Indication: PAIN

REACTIONS (3)
  - ARTHRALGIA [None]
  - PSORIASIS [None]
  - GAIT DISTURBANCE [None]
